FAERS Safety Report 5127788-9 (Version None)
Quarter: 2006Q4

REPORT INFORMATION
  Report Type: 
  Country: None (occurrence: None)
  Receive Date: 20061016
  Receipt Date: 20060922
  Transmission Date: 20070319
  Serious: Yes (Other)
  Sender: FDA-Public Use
  Company Number: BR-ROCHE-464551

PATIENT
  Age: 12 Year
  Sex: Female
  Weight: 52 kg

DRUGS (1)
  1. RIVOTRIL [Suspect]
     Indication: DRUG USE FOR UNKNOWN INDICATION
     Route: 048
     Dates: start: 20060921, end: 20060921

REACTIONS (7)
  - AGITATION [None]
  - EPISTAXIS [None]
  - MEDICATION ERROR [None]
  - MEMORY IMPAIRMENT [None]
  - SINUSITIS [None]
  - SOMNOLENCE [None]
  - VOMITING [None]
